FAERS Safety Report 6387252-6 (Version None)
Quarter: 2009Q3

REPORT INFORMATION
  Report Type: 
  Country: None (occurrence: None)
  Receive Date: 20090928
  Receipt Date: 20090916
  Transmission Date: 20100115
  Serious: Yes (Hospitalization)
  Sender: FDA-Public Use
  Company Number: GXKR2007US04497

PATIENT
  Age: 77 Year
  Sex: Female

DRUGS (15)
  1. CAPECITABINE [Suspect]
     Indication: COLON CANCER
     Dosage: SEE IMAGE
     Dates: start: 20040101, end: 20041001
  2. IRINOTECAN HCL [Suspect]
     Indication: COLON CANCER
     Dosage: 200 MG/M2 ON DAY 1 (21 DAYS/CYCLE; INITIALLY DOSE DECREASED BY 50%; TOLERATED 7 CYCLES),; 130 MG/M2
     Dates: start: 20050401
  3. BEVACIZUMAB (BEVACIZUMAB) [Suspect]
     Indication: COLON CANCER
     Dosage: 7.5 MG/KG ON DAY 1 REPEATED EVERY 21 DAYS,
     Dates: start: 20050401
  4. OXALIPLATIN [Concomitant]
  5. LEUCOVORIN CALCIUM [Concomitant]
  6. FLUOROURACIL [Concomitant]
  7. LISINOPRIL [Concomitant]
  8. METOPROLOL (METOPROLOL) [Concomitant]
  9. PANTOPRAZOLE SODIUM [Concomitant]
  10. LOVASTATIN [Concomitant]
  11. LOPERAMIDE (LOPERAMIDE) [Concomitant]
  12. PROCHLORPERAZINE MALEATE [Concomitant]
  13. ONDANSETRON [Concomitant]
  14. OXYCODONE HCL [Concomitant]
  15. ACETAMINOPHEN [Concomitant]

REACTIONS (12)
  - COLON CANCER METASTATIC [None]
  - DIARRHOEA [None]
  - DISEASE COMPLICATION [None]
  - FANCONI SYNDROME [None]
  - FATIGUE [None]
  - HYPOCALCAEMIA [None]
  - INTESTINAL MASS [None]
  - NO THERAPEUTIC RESPONSE [None]
  - REFUSAL OF TREATMENT BY PATIENT [None]
  - THERAPEUTIC AGENT TOXICITY [None]
  - ULCER [None]
  - VOMITING [None]
